FAERS Safety Report 19118019 (Version 4)
Quarter: 2022Q1

REPORT INFORMATION
  Report Type: Report from Study
  Country: EG (occurrence: EG)
  Receive Date: 20210410
  Receipt Date: 20220210
  Transmission Date: 20220423
  Serious: Yes (Other)
  Sender: FDA-Public Use
  Company Number: NVSC2021EG077355

PATIENT
  Age: 46 Year
  Sex: Female

DRUGS (10)
  1. GILENYA [Suspect]
     Active Substance: FINGOLIMOD HYDROCHLORIDE
     Indication: Multiple sclerosis
     Dosage: 0.5 MG, QD
     Route: 048
     Dates: start: 20200927
  2. GILENYA [Suspect]
     Active Substance: FINGOLIMOD HYDROCHLORIDE
     Dosage: 0.5 MG, QD
     Route: 048
     Dates: start: 20200928, end: 20210225
  3. GILENYA [Suspect]
     Active Substance: FINGOLIMOD HYDROCHLORIDE
     Dosage: 0.5 MG, QD
     Route: 048
     Dates: start: 20200929
  4. GILENYA [Suspect]
     Active Substance: FINGOLIMOD HYDROCHLORIDE
     Dosage: 0.5 MG
     Route: 048
     Dates: start: 20220114, end: 20220129
  5. GILENYA [Suspect]
     Active Substance: FINGOLIMOD HYDROCHLORIDE
     Dosage: UNK
     Route: 048
     Dates: start: 202102, end: 20210403
  6. GLUCOPHAGE 1000 [Concomitant]
     Indication: Diabetes mellitus
     Dosage: 1 DF, BID
     Route: 048
     Dates: start: 2007
  7. GLUCOPHAGE 1000 [Concomitant]
     Indication: Hypometabolism
  8. LUSTRAL [Concomitant]
     Active Substance: SERTRALINE HYDROCHLORIDE
     Indication: Nervousness
     Dosage: 50 MG, QD
     Route: 048
     Dates: start: 2008
  9. IVABRADINE [Concomitant]
     Active Substance: IVABRADINE
     Indication: Heart rate irregular
     Dosage: 1 DF, BID
     Route: 065
     Dates: start: 2010
  10. GAPTIN [Concomitant]
     Indication: Product used for unknown indication
     Dosage: 100 MG, BID (WHEN NEEDED)
     Route: 065

REACTIONS (24)
  - Blood pressure abnormal [Not Recovered/Not Resolved]
  - Tachycardia [Not Recovered/Not Resolved]
  - Hypertension [Not Recovered/Not Resolved]
  - Weight increased [Not Recovered/Not Resolved]
  - COVID-19 [Recovered/Resolved]
  - Dizziness [Recovered/Resolved]
  - Taste disorder [Recovered/Resolved]
  - Hypotension [Recovered/Resolved]
  - Parosmia [Recovered/Resolved]
  - Fatigue [Recovered/Resolved]
  - Pain in extremity [Recovered/Resolved]
  - Limb discomfort [Recovered/Resolved]
  - Insomnia [Recovered/Resolved]
  - Stress [Recovered/Resolved]
  - Sinonasal obstruction [Recovered/Resolved]
  - Haemoglobin decreased [Recovered/Resolved]
  - Serum ferritin decreased [Recovered/Resolved]
  - Panic attack [Recovered/Resolved]
  - Palpitations [Not Recovered/Not Resolved]
  - COVID-19 [Recovered/Resolved]
  - Back pain [Recovered/Resolved]
  - Oropharyngeal pain [Recovered/Resolved]
  - Fatigue [Recovered/Resolved]
  - Arthralgia [Recovered/Resolved]

NARRATIVE: CASE EVENT DATE: 20200927
